FAERS Safety Report 11213974 (Version 1)
Quarter: 2015Q2

REPORT INFORMATION
  Report Type: Report from Study
  Country: BE (occurrence: BE)
  Receive Date: 20150623
  Receipt Date: 20150623
  Transmission Date: 20150821
  Serious: Yes (Hospitalization, Other)
  Sender: FDA-Public Use
  Company Number: BE-JNJFOC-20150600310

PATIENT
  Age: 90 Year
  Sex: Male
  Weight: 53.8 kg

DRUGS (9)
  1. ASAFLOW [Concomitant]
     Active Substance: ASPIRIN
     Indication: PROPHYLAXIS
     Route: 048
     Dates: start: 2009
  2. BEFACT FORTE [Concomitant]
     Indication: PROPHYLAXIS
     Route: 048
     Dates: start: 20130730
  3. MOVICOL [Concomitant]
     Active Substance: POLYETHYLENE GLYCOL 3350\POTASSIUM CHLORIDE\SODIUM BICARBONATE\SODIUM CHLORIDE
     Indication: CONSTIPATION
     Route: 048
     Dates: start: 20121224
  4. DAFALGAN FORTE [Concomitant]
     Indication: PAIN
     Route: 048
  5. IBRUTINIB [Suspect]
     Active Substance: IBRUTINIB
     Indication: MANTLE CELL LYMPHOMA
     Route: 048
     Dates: start: 20140731, end: 20150202
  6. MEDROL [Concomitant]
     Active Substance: METHYLPREDNISOLONE
     Indication: PALLIATIVE CARE
     Route: 048
     Dates: start: 20150126, end: 20150331
  7. PANTOMED [Concomitant]
     Active Substance: DEXPANTHENOL
     Indication: GASTROINTESTINAL DISORDER THERAPY
     Route: 048
     Dates: start: 20121224
  8. TAMSULOSIN [Concomitant]
     Active Substance: TAMSULOSIN
     Indication: BENIGN PROSTATIC HYPERPLASIA
     Route: 048
     Dates: start: 2009
  9. PARACODINE [Concomitant]
     Active Substance: DIHYDROCODEINE BITARTRATE
     Indication: COUGH
     Route: 048
     Dates: start: 20150126

REACTIONS (3)
  - Pleural effusion [Recovered/Resolved]
  - Metastases to lymph nodes [Not Recovered/Not Resolved]
  - Respiratory failure [Recovered/Resolved]

NARRATIVE: CASE EVENT DATE: 20150129
